FAERS Safety Report 11172295 (Version 1)
Quarter: 2015Q2

REPORT INFORMATION
  Report Type: Report from Study
  Country: PR (occurrence: US)
  Receive Date: 20150608
  Receipt Date: 20150608
  Transmission Date: 20150821
  Serious: Yes (Hospitalization)
  Sender: FDA-Public Use
  Company Number: US-ACTELION-A-NJ2015-114161

PATIENT
  Age: 47 Year
  Sex: Female

DRUGS (10)
  1. PREDNISONE. [Concomitant]
     Active Substance: PREDNISONE
     Dosage: 20 MG, QD
     Dates: start: 201408
  2. CELLCEPT [Concomitant]
     Active Substance: MYCOPHENOLATE MOFETIL\MYCOPHENOLATE MOFETIL HYDROCHLORIDE
     Dosage: 500 MG, BID
     Dates: start: 201408
  3. COREG [Concomitant]
     Active Substance: CARVEDILOL
     Dosage: 25 MG, BID
  4. MACITENTAN [Suspect]
     Active Substance: MACITENTAN
     Indication: PULMONARY ARTERIAL HYPERTENSION
     Dosage: 10 MG, QD
     Route: 048
  5. PRILOSEC [Concomitant]
     Active Substance: OMEPRAZOLE MAGNESIUM
     Dosage: 20 MG, QD
  6. ZANTAC [Concomitant]
     Active Substance: RANITIDINE HYDROCHLORIDE
     Dosage: 300 MG, QPM
  7. RIOCIGUAT [Concomitant]
     Active Substance: RIOCIGUAT
     Dosage: 2.5 MG, TID
  8. PREDNISONE. [Concomitant]
     Active Substance: PREDNISONE
     Dosage: 12.5 MG, QD
  9. BUMETANIDE. [Concomitant]
     Active Substance: BUMETANIDE
     Dosage: 1 MG, BID
  10. CALTRATE [Concomitant]
     Active Substance: CALCIUM CARBONATE
     Dosage: 1500 MG, QD

REACTIONS (5)
  - Generalised oedema [Recovered/Resolved]
  - Fluid retention [Recovered/Resolved]
  - Oedema peripheral [Recovered/Resolved]
  - Occult blood positive [Recovered/Resolved]
  - Urinary tract infection [Recovered/Resolved]

NARRATIVE: CASE EVENT DATE: 20150303
